FAERS Safety Report 9572806 (Version 1)
Quarter: 2013Q3

REPORT INFORMATION
  Report Type: Spontaneous
  Country: US (occurrence: None)
  Receive Date: 20130930
  Receipt Date: 20130930
  Transmission Date: 20140515
  Serious: Yes (Other)
  Sender: FDA-Public Use
  Company Number: None

PATIENT
  Age: 56 Year
  Sex: 0

DRUGS (1)
  1. METOPROLOL ER [Suspect]
     Indication: BLOOD PRESSURE
     Dosage: ONE- HALF TABLET
     Route: 048
     Dates: start: 20130802, end: 20130927

REACTIONS (3)
  - Blood pressure fluctuation [None]
  - Blood pressure inadequately controlled [None]
  - Product quality issue [None]
